FAERS Safety Report 7119902-0 (Version None)
Quarter: 2010Q4

REPORT INFORMATION
  Report Type: 
  Country: None (occurrence: None)
  Receive Date: 20101123
  Receipt Date: 20101008
  Transmission Date: 20110411
  Serious: No
  Sender: FDA-Public Use
  Company Number: US-BRISTOL-MYERS SQUIBB COMPANY-15326432

PATIENT
  Age: 49 Year
  Sex: Male

DRUGS (7)
  1. ONGLYZA [Suspect]
     Dosage: THERAPY STARTED MORE THAN 2 WEEKS AGO
  2. LOTENSIN [Concomitant]
  3. METFORMIN HCL [Concomitant]
  4. TRAMADOL HCL [Concomitant]
     Indication: PAIN
  5. GABAPENTIN [Concomitant]
     Dosage: FORM:CAPSULES
  6. IBUPROFEN [Concomitant]
  7. TYLENOL (CAPLET) [Concomitant]

REACTIONS (1)
  - HEADACHE [None]
